FAERS Safety Report 6734606-1 (Version None)
Quarter: 2010Q2

REPORT INFORMATION
  Report Type: 
  Country: None (occurrence: None)
  Receive Date: 20100519
  Receipt Date: 20100503
  Transmission Date: 20101027
  Serious: Yes (Hospitalization)
  Sender: FDA-Public Use
  Company Number: AMAG201000225

PATIENT
  Age: 83 Year
  Sex: Female
  Weight: 42 kg

DRUGS (17)
  1. FERAHEME [Suspect]
     Indication: IRON DEFICIENCY ANAEMIA
     Dosage: 510 MG, SINGLE, INTRAVENOUS; 5 ML, SINGLE (150MG), INTRAVENOUS
     Route: 042
     Dates: start: 20100107, end: 20100107
  2. FERAHEME [Suspect]
     Indication: IRON DEFICIENCY ANAEMIA
     Dosage: 510 MG, SINGLE, INTRAVENOUS; 5 ML, SINGLE (150MG), INTRAVENOUS
     Route: 042
     Dates: start: 20100426, end: 20100426
  3. ACETAMINOPHEN [Concomitant]
  4. ASPIRIN [Concomitant]
  5. EPOGEN [Concomitant]
  6. VACCINES [Concomitant]
  7. VITAMIN B COMPLEX WITH C (ASCORBIC ACID, CALCIUM PANTOTHENATE, CYANOCO [Concomitant]
  8. HECTOROL [Concomitant]
  9. LEVOTHYROXINE SODIUM [Concomitant]
  10. LISINOPRIL (LISINOPRIL DIHYDRATE) [Concomitant]
  11. LOVASTATIN [Concomitant]
  12. METOPROLOL TARTRATE [Concomitant]
  13. NIFEDIPINE [Concomitant]
  14. PLENDIL [Concomitant]
  15. PRILOSEC (OMEPRAZOLE) [Concomitant]
  16. RELAFEN [Concomitant]
  17. RENAGEL [Concomitant]

REACTIONS (5)
  - BLOOD GLUCOSE INCREASED [None]
  - BLOOD PRESSURE SYSTOLIC INCREASED [None]
  - CHEST PAIN [None]
  - HYPOTENSION [None]
  - LOSS OF CONSCIOUSNESS [None]
